FAERS Safety Report 14759785 (Version 1)
Quarter: 2018Q2

REPORT INFORMATION
  Report Type: Report from Study
  Country: US (occurrence: US)
  Receive Date: 20180413
  Receipt Date: 20180413
  Transmission Date: 20180711
  Serious: Yes (Death, Life-Threatening, Other)
  Sender: FDA-Public Use
  Company Number: US-PFIZER INC-2018149604

PATIENT

DRUGS (2)
  1. MITOXANTRONE HCL [Suspect]
     Active Substance: MITOXANTRONE HYDROCHLORIDE
     Indication: ACUTE MYELOID LEUKAEMIA
     Dosage: UNK (15 MIN, EITHER 80 MG/M^2 ONCE ON DAY 2 (HIGH DOSE) OR 12 MG/M^2 DAILY ON DAYS 1-3 (STANDARD DO)
     Route: 042
  2. CYTARABINE. [Suspect]
     Active Substance: CYTARABINE
     Indication: ACUTE MYELOID LEUKAEMIA
     Dosage: UNK (3 G/M^2 BY INTRAVENOUS INFUSION OVER 3 H ONCE DAILY ON DAYS 1-5)
     Route: 042

REACTIONS (2)
  - Haemorrhage [Fatal]
  - Bone marrow failure [Unknown]
